FAERS Safety Report 13526871 (Version 6)
Quarter: 2018Q2

REPORT INFORMATION
  Report Type: Spontaneous
  Country: US (occurrence: US)
  Receive Date: 20170509
  Receipt Date: 20180430
  Transmission Date: 20180711
  Serious: Yes (Other)
  Sender: FDA-Public Use
  Company Number: ALCN2017US003165

PATIENT
  Age: 71 Year
  Sex: Female
  Weight: 94.4 kg

DRUGS (13)
  1. BETADINE [Suspect]
     Active Substance: POVIDONE-IODINE
     Indication: INTRAOPERATIVE CARE
     Dosage: UNK
     Route: 047
     Dates: start: 20170405
  2. SYSTANE (HYPROMELLOSE 2910 (4000 MPA.S)) [Suspect]
     Active Substance: HYPROMELLOSE 2910 (4000 MPA.S)
     Indication: INTRAOPERATIVE CARE
     Dosage: (01 TIME)
     Route: 047
     Dates: start: 20170405
  3. OFLOXACIN. [Suspect]
     Active Substance: OFLOXACIN
     Indication: INTRAOPERATIVE CARE
     Dosage: (02 TIMES)
     Route: 047
     Dates: start: 20170405
  4. DUREZOL [Concomitant]
     Active Substance: DIFLUPREDNATE
     Indication: POSTOPERATIVE CARE
     Dosage: UNK UNK, Q2H
     Route: 047
     Dates: start: 20170408, end: 20170409
  5. BESIVANCE [Concomitant]
     Active Substance: BESIFLOXACIN
     Indication: PREOPERATIVE CARE
     Dosage: 1 GTT, TID
     Route: 047
     Dates: start: 20170402, end: 20170404
  6. OFLOXACIN. [Suspect]
     Active Substance: OFLOXACIN
     Indication: POSTOPERATIVE CARE
     Dosage: UNK, QID
     Route: 047
     Dates: start: 20170405, end: 20170408
  7. BROMFENAC [Concomitant]
     Active Substance: BROMFENAC SODIUM
     Indication: POSTOPERATIVE CARE
     Dosage: UNK UNK, QD
     Route: 047
     Dates: start: 20170405, end: 20170409
  8. ALCAINE [Suspect]
     Active Substance: PROPARACAINE HYDROCHLORIDE
     Indication: INTRAOPERATIVE CARE
     Dosage: (01 TIME)
     Route: 047
     Dates: start: 20170405
  9. COMBIGAN [Suspect]
     Active Substance: BRIMONIDINE TARTRATE\TIMOLOL MALEATE
     Indication: INTRAOPERATIVE CARE
     Dosage: (01 TIME)
     Route: 047
     Dates: start: 20170405
  10. DUREZOL [Concomitant]
     Active Substance: DIFLUPREDNATE
     Indication: PREOPERATIVE CARE
     Dosage: UNK UNK, QD
     Route: 047
     Dates: start: 20170404
  11. BESIVANCE [Concomitant]
     Active Substance: BESIFLOXACIN
     Dosage: 1 GTT, Q2H
     Route: 047
     Dates: start: 20170408, end: 20170409
  12. BROMFENAC [Concomitant]
     Active Substance: BROMFENAC SODIUM
     Indication: PREOPERATIVE CARE
     Dosage: UNK UNK, QD
     Route: 047
     Dates: start: 20170329, end: 20170404
  13. BSS [Suspect]
     Active Substance: CALCIUM CHLORIDE\MAGNESIUM CHLORIDE\POTASSIUM CHLORIDE\SODIUM ACETATE\SODIUM CHLORIDE\SODIUM CITRATE
     Indication: EYE IRRIGATION
     Dosage: UNK
     Route: 047
     Dates: start: 20170405

REACTIONS (5)
  - Eye inflammation [Not Recovered/Not Resolved]
  - Endophthalmitis [Not Recovered/Not Resolved]
  - Corneal oedema [Unknown]
  - Anterior chamber fibrin [Unknown]
  - Visual impairment [Not Recovered/Not Resolved]

NARRATIVE: CASE EVENT DATE: 20170408
